FAERS Safety Report 25461821 (Version 1)
Quarter: 2025Q2

REPORT INFORMATION
  Report Type: Spontaneous
  Country: SE (occurrence: SE)
  Receive Date: 20250620
  Receipt Date: 20250620
  Transmission Date: 20250716
  Serious: Yes (Death, Life-Threatening, Hospitalization, Disabling)
  Sender: MYLAN
  Company Number: None

PATIENT
  Age: 72 Year
  Sex: Male

DRUGS (4)
  1. METFORMIN [Suspect]
     Active Substance: METFORMIN HYDROCHLORIDE
     Indication: Blood glucose increased
     Dosage: 500 MILLIGRAM, QD
     Dates: start: 2023, end: 202408
  2. BISOPROLOL [Concomitant]
     Active Substance: BISOPROLOL
  3. Candesarstad [Concomitant]
  4. XARELTO [Concomitant]
     Active Substance: RIVAROXABAN

REACTIONS (7)
  - Dyspnoea [Fatal]
  - Myositis [Fatal]
  - Pneumonia [Fatal]
  - Visual impairment [Fatal]
  - Cough [Fatal]
  - Asthenia [Fatal]
  - Muscular weakness [Fatal]

NARRATIVE: CASE EVENT DATE: 20230101
